FAERS Safety Report 5717172-9 (Version None)
Quarter: 2008Q2

REPORT INFORMATION
  Report Type: 
  Country: None (occurrence: None)
  Receive Date: 20080424
  Receipt Date: 20080415
  Transmission Date: 20081010
  Serious: Yes (Hospitalization, Other)
  Sender: FDA-Public Use
  Company Number: BG-PFIZER INC-2008033719

PATIENT
  Sex: Female
  Weight: 47 kg

DRUGS (3)
  1. ZMAX [Suspect]
     Indication: PHARYNGITIS
     Route: 048
     Dates: start: 20080103, end: 20080103
  2. OSPEN [Concomitant]
     Route: 048
     Dates: start: 20071223, end: 20071228
  3. OSPEN [Concomitant]
     Route: 048
     Dates: start: 20071229, end: 20080102

REACTIONS (6)
  - DIARRHOEA [None]
  - DYSPNOEA [None]
  - FEELING ABNORMAL [None]
  - HEADACHE [None]
  - PHARYNGEAL OEDEMA [None]
  - TONGUE OEDEMA [None]
